FAERS Safety Report 11236164 (Version 1)
Quarter: 2015Q3

REPORT INFORMATION
  Report Type: Spontaneous
  Country: US (occurrence: US)
  Receive Date: 20150702
  Receipt Date: 20150702
  Transmission Date: 20151125
  Serious: Yes (Hospitalization, Other)
  Sender: FDA-Public Use
  Company Number: US-PFIZER INC-2015216584

PATIENT
  Age: 33 Year
  Sex: Male

DRUGS (4)
  1. IBUPROFEN. [Suspect]
     Active Substance: IBUPROFEN
     Indication: PAIN
  2. IBUPROFEN. [Suspect]
     Active Substance: IBUPROFEN
     Indication: PYREXIA
     Dosage: UNKNOWN
  3. ACETAMINOPHEN. [Concomitant]
     Active Substance: ACETAMINOPHEN
     Indication: PYREXIA
  4. ACETAMINOPHEN. [Concomitant]
     Active Substance: ACETAMINOPHEN
     Indication: PAIN

REACTIONS (1)
  - Encephalitis [Recovered/Resolved]

NARRATIVE: CASE EVENT DATE: 201101
